FAERS Safety Report 8690374 (Version 4)
Quarter: 2013Q3

REPORT INFORMATION
  Report Type: Spontaneous
  Country: US (occurrence: US)
  Receive Date: 20120727
  Receipt Date: 20130719
  Transmission Date: 20140515
  Serious: Yes (Life-Threatening, Hospitalization)
  Sender: FDA-Public Use
  Company Number: US-ASTRAZENECA-2012SE25197

PATIENT
  Age: 58 Year
  Sex: Female

DRUGS (1)
  1. SEROQUEL [Suspect]
     Indication: BIPOLAR DISORDER
     Route: 048

REACTIONS (9)
  - Suicide attempt [Unknown]
  - Hallucination, auditory [Unknown]
  - Disturbance in attention [Unknown]
  - Insomnia [Unknown]
  - Agitation [Unknown]
  - Activities of daily living impaired [Unknown]
  - Bipolar disorder [Unknown]
  - Intentional drug misuse [Unknown]
  - Drug dose omission [Unknown]
